FAERS Safety Report 8334042-0 (Version None)
Quarter: 2012Q2

REPORT INFORMATION
  Report Type: 
  Country: None (occurrence: None)
  Receive Date: 20120503
  Receipt Date: 20110210
  Transmission Date: 20120825
  Serious: No
  Sender: FDA-Public Use
  Company Number: US-TEVA-2011000666

PATIENT
  Sex: Male

DRUGS (7)
  1. LIPITOR [Concomitant]
  2. NUVIGIL [Suspect]
     Indication: NARCOLEPSY
     Dosage: 150 MILLIGRAM;
     Route: 048
     Dates: start: 20110101, end: 20110201
  3. AMBIEN [Concomitant]
  4. EXFORGE [Concomitant]
  5. ZEGERID [Concomitant]
  6. ASPIRIN [Concomitant]
  7. MIRAPEX [Concomitant]

REACTIONS (1)
  - STOMATITIS [None]
